FAERS Safety Report 25937285 (Version 1)
Quarter: 2025Q4

REPORT INFORMATION
  Report Type: Spontaneous
  Country: EU (occurrence: EU)
  Receive Date: 20251017
  Receipt Date: 20251017
  Transmission Date: 20260117
  Serious: Yes (Hospitalization, Other)
  Sender: GLAXOSMITHKLINE
  Company Number: None

PATIENT
  Sex: Female

DRUGS (2)
  1. LAMICTAL [Suspect]
     Active Substance: LAMOTRIGINE
     Indication: Product used for unknown indication
     Dosage: UNK(40-50 TABLETS OF 50 MG)
     Route: 065
  2. ETHYLMORPHINE HYDROCHLORIDE\HERBALS [Suspect]
     Active Substance: ETHYLMORPHINE HYDROCHLORIDE\HERBALS
     Indication: Product used for unknown indication
     Dosage: UNK(A HALF OF A BOTTLE)

REACTIONS (5)
  - Polyuria [Unknown]
  - Vomiting [Unknown]
  - Intentional self-injury [Unknown]
  - Retching [Unknown]
  - Intentional overdose [Unknown]

NARRATIVE: CASE EVENT DATE: 20220307
